FAERS Safety Report 9442429 (Version 2)
Quarter: 2014Q1

REPORT INFORMATION
  Report Type: Spontaneous
  Country: JP (occurrence: JP)
  Receive Date: 20130806
  Receipt Date: 20140121
  Transmission Date: 20141002
  Serious: Yes (Other)
  Sender: FDA-Public Use
  Company Number: JP-PFIZER INC-2013226260

PATIENT
  Age: 6 Decade
  Sex: Male

DRUGS (2)
  1. NOVASTAN [Suspect]
     Dosage: UNK
     Route: 051
  2. HEPARIN SODIUM [Concomitant]
     Dosage: UNK

REACTIONS (1)
  - Embolism [Recovering/Resolving]
